FAERS Safety Report 5115246-7 (Version None)
Quarter: 2006Q3

REPORT INFORMATION
  Report Type: 
  Country: None (occurrence: None)
  Receive Date: 20060922
  Receipt Date: 20060906
  Transmission Date: 20061208
  Serious: Yes (Life-Threatening)
  Sender: FDA-Public Use
  Company Number: 2006RR-03777

PATIENT
  Age: 46 Year
  Sex: Male

DRUGS (7)
  1. SIMVASTATIN [Suspect]
     Indication: HYPERCHOLESTEROLAEMIA
     Dosage: 40 MG, QD; ORAL
     Route: 048
  2. CLOZAPINE [Suspect]
     Dosage: ORAL
     Route: 048
     Dates: start: 19951031, end: 20040809
  3. RAMIPRIL [Suspect]
     Indication: HYPERTENSION
     Dosage: 5 MG, BID; ORAL
     Route: 048
  4. CLOZAPINE [Suspect]
     Dosage: UNK, SINGLE, ORAL
     Route: 048
     Dates: start: 20040810
  5. AMISULPRIDE [Concomitant]
  6. ASPIRIN [Concomitant]
  7. ATENOLOL [Concomitant]

REACTIONS (2)
  - PANCREATITIS [None]
  - RENAL FAILURE [None]
